FAERS Safety Report 7868966-5 (Version None)
Quarter: 2011Q4

REPORT INFORMATION
  Report Type: 
  Country: None (occurrence: None)
  Receive Date: 20111028
  Receipt Date: 20101222
  Transmission Date: 20120403
  Serious: No
  Sender: FDA-Public Use
  Company Number: US-AMGEN-USASP2010010871

PATIENT
  Age: 58 Year
  Sex: Female

DRUGS (3)
  1. SULFAZALAZINE (AZULFIDINE) [Concomitant]
     Dates: start: 20090101
  2. ENBREL [Suspect]
     Indication: RHEUMATOID ARTHRITIS
     Dates: start: 20101028
  3. METHOTREXATE (TREXALL) [Concomitant]
     Dates: start: 20090101

REACTIONS (3)
  - ARTHRALGIA [None]
  - DYSSTASIA [None]
  - DRUG INEFFECTIVE [None]
